FAERS Safety Report 24056501 (Version 2)
Quarter: 2024Q3

REPORT INFORMATION
  Report Type: Spontaneous
  Country: FI (occurrence: FI)
  Receive Date: 20240705
  Receipt Date: 20240712
  Transmission Date: 20241017
  Serious: Yes (Other)
  Sender: MERCK
  Company Number: FI-009507513-2407FIN002085

PATIENT
  Age: 55 Year
  Sex: Male

DRUGS (3)
  1. PEMBROLIZUMAB [Suspect]
     Active Substance: PEMBROLIZUMAB
     Indication: Nodular melanoma
     Dosage: 200 MG ON DAY 1 WITH A CYCLE OF 3 WEEKS
     Dates: start: 20240520, end: 20240520
  2. PEMBROLIZUMAB [Suspect]
     Active Substance: PEMBROLIZUMAB
     Dosage: 200 MG ON DAY 1 WITH A CYCLE OF 3 WEEKS
     Dates: start: 20240610, end: 20240610
  3. PEMBROLIZUMAB [Suspect]
     Active Substance: PEMBROLIZUMAB
     Dosage: 200 MG ON DAY 1 WITH A CYCLE OF 3 WEEKS
     Dates: start: 20240701

REACTIONS (10)
  - Superficial vein thrombosis [Recovering/Resolving]
  - Cutaneous vasculitis [Recovering/Resolving]
  - Peripheral swelling [Recovering/Resolving]
  - Skin discolouration [Recovering/Resolving]
  - Scab [Recovering/Resolving]
  - Limb injury [Recovering/Resolving]
  - Skin ulcer [Recovering/Resolving]
  - Immune-mediated dermatitis [Recovering/Resolving]
  - Therapeutic response unexpected [Unknown]
  - Pre-existing condition improved [Unknown]

NARRATIVE: CASE EVENT DATE: 20240101
